FAERS Safety Report 14595352 (Version 1)
Quarter: 2018Q1

REPORT INFORMATION
  Report Type: Spontaneous
  Country: US (occurrence: US)
  Receive Date: 20180302
  Receipt Date: 20180302
  Transmission Date: 20180509
  Serious: Yes (Hospitalization)
  Sender: FDA-Public Use
  Company Number: US-FRESENIUS KABI-FK201802536

PATIENT

DRUGS (1)
  1. BUPIVACAINE (MANUFACTURER UNKNOWN) [Suspect]
     Active Substance: BUPIVACAINE
     Indication: ARTHRALGIA
     Route: 065

REACTIONS (4)
  - Fall [Unknown]
  - Fibula fracture [Unknown]
  - Hypoaesthesia [Unknown]
  - Muscular weakness [Unknown]
